FAERS Safety Report 12496935 (Version 1)
Quarter: 2016Q2

REPORT INFORMATION
  Report Type: Report from Study
  Country: NL (occurrence: NL)
  Receive Date: 20160624
  Receipt Date: 20160624
  Transmission Date: 20160815
  Serious: Yes (Death, Other)
  Sender: FDA-Public Use
  Company Number: NL-ABBVIE-16P-114-1660053-00

PATIENT
  Age: 62 Year
  Sex: Male

DRUGS (1)
  1. LUCRIN DEPOT [Suspect]
     Active Substance: LEUPROLIDE ACETATE
     Indication: PROSTATE CANCER
     Route: 050
     Dates: start: 20090527

REACTIONS (3)
  - Asthenia [Fatal]
  - Coma [Fatal]
  - Headache [Fatal]

NARRATIVE: CASE EVENT DATE: 201606
